FAERS Safety Report 8425008-0 (Version None)
Quarter: 2012Q2

REPORT INFORMATION
  Report Type: 
  Country: None (occurrence: None)
  Receive Date: 20120605
  Receipt Date: 20120605
  Transmission Date: 20120825
  Serious: Yes (Life-Threatening, Hospitalization)
  Sender: FDA-Public Use
  Company Number: None

PATIENT
  Age: 66 Year
  Sex: Female
  Weight: 63.5036 kg

DRUGS (1)
  1. ONDANSETRON [Suspect]
     Indication: NAUSEA
     Dosage: 1 VIAL ONE TIME DOSE IV
     Route: 042
     Dates: start: 20120515, end: 20120515

REACTIONS (2)
  - OXYGEN SATURATION DECREASED [None]
  - RESPIRATORY ARREST [None]
